FAERS Safety Report 7491293 (Version 2)
Quarter: 2012Q4

REPORT INFORMATION
  Report Type: 
  Country: US (occurrence: US)
  Receive Date: 20100721
  Receipt Date: 20121212
  Transmission Date: 20130627
  Serious: No
  Sender: FDA-Public Use
  Company Number: US-BIOGENIDEC-2010BI023942

PATIENT
  Age: 38 Year
  Sex: Female

DRUGS (2)
  1. AVONEX [Suspect]
     Indication: MULTIPLE SCLEROSIS
     Route: 030
     Dates: start: 20100409, end: 20100423
  2. AVONEX [Suspect]
     Indication: MULTIPLE SCLEROSIS
     Route: 030
     Dates: start: 20100430, end: 20100709

REACTIONS (5)
  - Pruritus allergic [Recovered/Resolved]
  - Burning sensation [Recovered/Resolved]
  - Blister [Not Recovered/Not Resolved]
  - Scab [Not Recovered/Not Resolved]
  - Hypersensitivity [Unknown]
